FAERS Safety Report 6474712-2 (Version None)
Quarter: 2009Q4

REPORT INFORMATION
  Report Type: 
  Country: None (occurrence: None)
  Receive Date: 20091204
  Receipt Date: 20091113
  Transmission Date: 20100525
  Serious: Yes (Hospitalization, Disabling)
  Sender: FDA-Public Use
  Company Number: A0833216A

PATIENT
  Age: 53 Year
  Sex: Female
  Weight: 88 kg

DRUGS (4)
  1. ZANAMIVIR [Suspect]
     Indication: H1N1 INFLUENZA
     Route: 042
     Dates: start: 20091023, end: 20091029
  2. PROZAC [Concomitant]
     Indication: DEPRESSION
     Dosage: 60MG PER DAY
     Route: 048
  3. LINEZOLID [Concomitant]
     Indication: SEPSIS
     Dosage: 600MG TWICE PER DAY
     Route: 048
     Dates: start: 20091020, end: 20091027
  4. PROPOFOL [Concomitant]
     Indication: SEDATION
     Route: 042
     Dates: end: 20091025

REACTIONS (2)
  - ENCEPHALOPATHY [None]
  - MUTISM [None]
